FAERS Safety Report 9767288 (Version 3)
Quarter: 2014Q1

REPORT INFORMATION
  Report Type: Spontaneous
  Country: US (occurrence: US)
  Receive Date: 20131217
  Receipt Date: 20140206
  Transmission Date: 20141002
  Serious: Yes (Other)
  Sender: FDA-Public Use
  Company Number: US-TEVA-448334USA

PATIENT
  Age: 47 Year
  Sex: Female
  Weight: 69.01 kg

DRUGS (1)
  1. PARAGARD 380A [Suspect]
     Indication: CONTRACEPTION
     Route: 015
     Dates: start: 2007, end: 20131126

REACTIONS (4)
  - Device breakage [Not Recovered/Not Resolved]
  - Pollakiuria [Unknown]
  - Pelvic pain [Unknown]
  - Abdominal pain lower [Unknown]
